FAERS Safety Report 15157811 (Version 1)
Quarter: 2018Q3

REPORT INFORMATION
  Report Type: Spontaneous
  Country: US (occurrence: US)
  Receive Date: 20180718
  Receipt Date: 20180718
  Transmission Date: 20181010
  Serious: No
  Sender: FDA-Public Use
  Company Number: US-PFIZER INC-2018289255

PATIENT
  Age: 59 Year
  Sex: Female
  Weight: 99.79 kg

DRUGS (4)
  1. LYRICA CR [Suspect]
     Active Substance: PREGABALIN
     Indication: NEURALGIA
  2. LYRICA CR [Suspect]
     Active Substance: PREGABALIN
     Indication: RESTLESS LEGS SYNDROME
  3. LYRICA CR [Suspect]
     Active Substance: PREGABALIN
     Indication: MUSCLE TWITCHING
  4. LYRICA CR [Suspect]
     Active Substance: PREGABALIN
     Indication: FIBROMYALGIA
     Dosage: 60 MG TABLETS, ONE TABLET TWICE A DAY, BY MOUTH
     Route: 048
     Dates: start: 2016, end: 201806

REACTIONS (1)
  - Abdominal pain [Not Recovered/Not Resolved]

NARRATIVE: CASE EVENT DATE: 201806
